FAERS Safety Report 10430626 (Version 1)
Quarter: 2014Q3

REPORT INFORMATION
  Report Type: Spontaneous
  Country: US (occurrence: None)
  Receive Date: 20140903
  Receipt Date: 20140903
  Transmission Date: 20150326
  Serious: No
  Sender: FDA-Public Use
  Company Number: None

PATIENT
  Age: 34 Year
  Sex: Female
  Weight: 90.72 kg

DRUGS (2)
  1. TRAMADOL 50 MG AMNEAL PHARMACEUTICALS [Suspect]
     Active Substance: TRAMADOL
     Indication: PAIN
     Dosage: 1 TAB, THREE TIMES DAILY, TAKEN BY MOUTH
     Route: 048
     Dates: start: 20140829, end: 20140902
  2. TRAMADOL 50 MG AMNEAL PHARMACEUTICALS [Suspect]
     Active Substance: TRAMADOL
     Indication: MIXED CONNECTIVE TISSUE DISEASE
     Dosage: 1 TAB, THREE TIMES DAILY, TAKEN BY MOUTH
     Route: 048
     Dates: start: 20140829, end: 20140902

REACTIONS (3)
  - Product substitution issue [None]
  - Drug effect decreased [None]
  - Product quality issue [None]

NARRATIVE: CASE EVENT DATE: 20140902
